FAERS Safety Report 7596494-3 (Version None)
Quarter: 2011Q3

REPORT INFORMATION
  Report Type: 
  Country: None (occurrence: None)
  Receive Date: 20110708
  Receipt Date: 20110629
  Transmission Date: 20111222
  Serious: Yes (Hospitalization)
  Sender: FDA-Public Use
  Company Number: DE-BIOGENIDEC-2011BI024111

PATIENT
  Age: 53 Year
  Sex: Female
  Weight: 67 kg

DRUGS (3)
  1. AVONEX [Suspect]
     Indication: RELAPSING-REMITTING MULTIPLE SCLEROSIS
     Route: 030
     Dates: start: 20100401, end: 20110317
  2. AVONEX [Suspect]
     Route: 030
     Dates: start: 20110628
  3. AVONEX [Suspect]
     Route: 030
     Dates: start: 20110417, end: 20110424

REACTIONS (2)
  - LUMBAR SPINAL STENOSIS [None]
  - TIBIA FRACTURE [None]
